FAERS Safety Report 10903906 (Version 1)
Quarter: 2015Q1

REPORT INFORMATION
  Report Type: Report from Study
  Country: FR (occurrence: FR)
  Receive Date: 20150311
  Receipt Date: 20150311
  Transmission Date: 20150721
  Serious: Yes (Death, Hospitalization)
  Sender: FDA-Public Use
  Company Number: FR-ROCHE-1161186

PATIENT
  Age: 73 Year
  Sex: Female

DRUGS (3)
  1. CORTANCYL [Concomitant]
     Active Substance: PREDNISONE
     Route: 065
  2. RITUXIMAB [Suspect]
     Active Substance: RITUXIMAB
     Indication: RHEUMATOID ARTHRITIS
     Route: 041
     Dates: start: 20061127
  3. RITUXIMAB [Suspect]
     Active Substance: RITUXIMAB
     Route: 042
     Dates: start: 20061212

REACTIONS (14)
  - Pleural effusion [Not Recovered/Not Resolved]
  - Ascites [Recovered/Resolved]
  - Mastitis [Recovered/Resolved]
  - Hepatic congestion [Recovering/Resolving]
  - Generalised oedema [Not Recovered/Not Resolved]
  - Skin infection [Fatal]
  - Pericarditis constrictive [Not Recovered/Not Resolved]
  - Bronchopneumonia [Recovered/Resolved]
  - Septic shock [Fatal]
  - Cardiac failure [Not Recovered/Not Resolved]
  - Cerebral disorder [Recovering/Resolving]
  - Wound [Recovering/Resolving]
  - Multi-organ failure [Fatal]
  - Cardiac failure [Fatal]

NARRATIVE: CASE EVENT DATE: 200701
